FAERS Safety Report 6222230-9 (Version None)
Quarter: 2009Q2

REPORT INFORMATION
  Report Type: 
  Country: None (occurrence: None)
  Receive Date: 20090611
  Receipt Date: 20090608
  Transmission Date: 20091009
  Serious: Yes (Death)
  Sender: FDA-Public Use
  Company Number: PHEH2009US05852

PATIENT
  Age: 74 Year
  Sex: Male
  Weight: 65 kg

DRUGS (2)
  1. EXJADE [Suspect]
     Indication: ACUTE MYELOID LEUKAEMIA
     Dosage: 1125 MG, QD
     Route: 048
     Dates: end: 20080125
  2. EXJADE [Suspect]
     Indication: MYELOFIBROSIS

REACTIONS (1)
  - CARDIAC ARREST [None]
